FAERS Safety Report 9993339 (Version 2)
Quarter: 2014Q1

REPORT INFORMATION
  Report Type: Report from Study
  Country: US (occurrence: US)
  Receive Date: 20140310
  Receipt Date: 20140310
  Transmission Date: 20141002
  Serious: Yes (Other)
  Sender: FDA-Public Use
  Company Number: PHEH2014US002153

PATIENT
  Age: 66 Year
  Sex: Female
  Weight: 87.98 kg

DRUGS (6)
  1. GILENYA [Suspect]
     Indication: MULTIPLE SCLEROSIS
     Dosage: 0.5 MG, QD
     Route: 048
     Dates: start: 20140114
  2. FOSAMAX [Concomitant]
     Indication: OSTEOPOROSIS
     Dosage: 5 MG, QD
     Route: 048
  3. LEVOTHYROXINE [Concomitant]
     Indication: HYPOTHYROIDISM
     Dosage: 88 UG, QD
     Route: 048
  4. PAXIL//PAROXETINE HYDROCHLORIDE [Concomitant]
     Indication: DEPRESSION
     Dosage: 40 MG, QD
     Route: 048
  5. ZESTORETIC [Concomitant]
     Dosage: 1 DF, QD
     Route: 048
  6. FENOBIBRATE [Concomitant]
     Dosage: 134 MG, QD
     Route: 048

REACTIONS (7)
  - Malaise [Not Recovered/Not Resolved]
  - Influenza like illness [Recovered/Resolved]
  - Eye pain [Recovered/Resolved]
  - Gingival pain [Recovered/Resolved]
  - Gait disturbance [Recovered/Resolved]
  - Urinary tract infection [Unknown]
  - White blood cell count decreased [Unknown]
